FAERS Safety Report 17425222 (Version 5)
Quarter: 2021Q2

REPORT INFORMATION
  Report Type: Spontaneous
  Country: FR (occurrence: FR)
  Receive Date: 20200217
  Receipt Date: 20210520
  Transmission Date: 20210716
  Serious: Yes (Other)
  Sender: FDA-Public Use
  Company Number: FR-SA-2020SA035346

PATIENT
  Age: 74 Year
  Sex: Female

DRUGS (19)
  1. LOVENOX [Suspect]
     Active Substance: ENOXAPARIN SODIUM
     Indication: SKIN TEST
     Dosage: UNK
     Route: 023
  2. ORGARAN [Suspect]
     Active Substance: DANAPAROID SODIUM
     Indication: SKIN TEST
     Route: 023
  3. INNOHEP [Suspect]
     Active Substance: TINZAPARIN SODIUM
     Indication: SKIN TEST
     Route: 023
  4. PHLOROGLUCINOL [Concomitant]
     Active Substance: PHLOROGLUCINOL
     Indication: GASTROINTESTINAL SURGERY
     Dosage: UNK
     Route: 065
  5. NEFOPAM [Concomitant]
     Active Substance: NEFOPAM
     Indication: GASTROINTESTINAL SURGERY
     Dosage: UNK
     Route: 065
  6. FONDAPARINUX [Concomitant]
     Active Substance: FONDAPARINUX
     Indication: SKIN TEST
  7. ANGIOX [Concomitant]
     Active Substance: BIVALIRUDIN
     Indication: SKIN TEST
     Route: 023
  8. HEPARIN SODIUM. [Suspect]
     Active Substance: HEPARIN SODIUM
     Indication: SKIN TEST
  9. KETOPROFEN. [Concomitant]
     Active Substance: KETOPROFEN
     Indication: GASTROINTESTINAL SURGERY
     Dosage: UNK
     Route: 065
  10. ANGIOX [Concomitant]
     Active Substance: BIVALIRUDIN
     Indication: SKIN TEST
  11. LOVENOX [Suspect]
     Active Substance: ENOXAPARIN SODIUM
     Indication: SKIN TEST
  12. HEPARIN SODIUM. [Suspect]
     Active Substance: HEPARIN SODIUM
     Indication: SKIN TEST
     Route: 023
  13. INNOHEP [Suspect]
     Active Substance: TINZAPARIN SODIUM
     Indication: SKIN TEST
  14. FONDAPARINUX [Concomitant]
     Active Substance: FONDAPARINUX
     Indication: SKIN TEST
     Route: 023
  15. CALCIPARINE [Suspect]
     Active Substance: HEPARIN CALCIUM
     Indication: SKIN TEST
     Route: 023
  16. CALCIPARINE [Suspect]
     Active Substance: HEPARIN CALCIUM
     Indication: SKIN TEST
     Route: 003
  17. TRAMADOL. [Concomitant]
     Active Substance: TRAMADOL
     Indication: GASTROINTESTINAL SURGERY
     Dosage: UNK
     Route: 065
  18. ORGARAN [Suspect]
     Active Substance: DANAPAROID SODIUM
     Indication: SKIN TEST
  19. PANTOPRAZOLE [Concomitant]
     Active Substance: PANTOPRAZOLE
     Indication: GASTROINTESTINAL DISORDER
     Dosage: UNK
     Route: 065

REACTIONS (5)
  - Pyrexia [Unknown]
  - Acute generalised exanthematous pustulosis [Unknown]
  - Rash [Unknown]
  - Exfoliative rash [Unknown]
  - Cross sensitivity reaction [Unknown]
